FAERS Safety Report 7460567-6 (Version None)
Quarter: 2011Q2

REPORT INFORMATION
  Report Type: 
  Country: None (occurrence: None)
  Receive Date: 20110419
  Receipt Date: 20110407
  Transmission Date: 20111010
  Serious: Yes (Hospitalization)
  Sender: FDA-Public Use
  Company Number: 2011028010

PATIENT
  Age: 46 Year
  Sex: Female

DRUGS (1)
  1. VIVAGLOBIN [Suspect]
     Indication: POLYNEUROPATHY
     Dosage: SUBCUTANEOUS
     Route: 058
     Dates: start: 20100929, end: 20101029

REACTIONS (2)
  - MYOCARDITIS [None]
  - DYSPNOEA [None]
